FAERS Safety Report 5333323-2 (Version None)
Quarter: 2007Q2

REPORT INFORMATION
  Report Type: 
  Country: None (occurrence: None)
  Receive Date: 20070524
  Receipt Date: 20070510
  Transmission Date: 20071010
  Serious: Yes (Hospitalization, Other)
  Sender: FDA-Public Use
  Company Number: US-AMGEN-KDL216534

PATIENT
  Sex: Male
  Weight: 109.9 kg

DRUGS (8)
  1. ENBREL [Suspect]
     Indication: ANKYLOSING SPONDYLITIS
     Route: 058
     Dates: start: 20060101
  2. DIAZEPAM [Concomitant]
  3. MORPHINE SULFATE [Concomitant]
  4. SENNA [Concomitant]
  5. NASONEX [Concomitant]
     Route: 055
  6. VITAMIN CAP [Concomitant]
  7. NEXIUM [Concomitant]
  8. OXYCONTIN [Concomitant]

REACTIONS (29)
  - ANAEMIA [None]
  - ANKYLOSING SPONDYLITIS [None]
  - ANXIETY [None]
  - ARTHRALGIA [None]
  - BACK PAIN [None]
  - BEREAVEMENT REACTION [None]
  - BLOOD BILIRUBIN INCREASED [None]
  - CARPAL TUNNEL SYNDROME [None]
  - CHOLELITHIASIS [None]
  - DEPRESSION [None]
  - DYSPHAGIA [None]
  - ERECTILE DYSFUNCTION [None]
  - FATIGUE [None]
  - GASTROOESOPHAGEAL REFLUX DISEASE [None]
  - HAEMORRHAGE [None]
  - HYPERHIDROSIS [None]
  - HYPOAESTHESIA [None]
  - HYPOTHYROIDISM [None]
  - INCREASED TENDENCY TO BRUISE [None]
  - INSOMNIA [None]
  - IRRITABILITY [None]
  - MUSCULOSKELETAL PAIN [None]
  - NECK PAIN [None]
  - PAIN IN EXTREMITY [None]
  - PARAESTHESIA [None]
  - POST PROCEDURAL HAEMATOMA [None]
  - REFLUX OESOPHAGITIS [None]
  - VIRAL UPPER RESPIRATORY TRACT INFECTION [None]
  - VISION BLURRED [None]
